FAERS Safety Report 15111885 (Version 1)
Quarter: 2018Q3

REPORT INFORMATION
  Report Type: Spontaneous
  Country: DZ (occurrence: DZ)
  Receive Date: 20180705
  Receipt Date: 20180705
  Transmission Date: 20181010
  Serious: Yes (Hospitalization, Other)
  Sender: FDA-Public Use
  Company Number: DZ-JNJFOC-20180540207

PATIENT
  Age: 33 Year
  Sex: Male
  Weight: 76 kg

DRUGS (3)
  1. REMICADE [Suspect]
     Active Substance: INFLIXIMAB
     Indication: ANKYLOSING SPONDYLITIS
     Route: 042
     Dates: start: 20180328
  2. SALAZOPYRIN [Concomitant]
     Active Substance: SULFASALAZINE
     Route: 048
  3. INDOMETHACIN. [Concomitant]
     Active Substance: INDOMETHACIN
     Route: 048

REACTIONS (4)
  - Lung infection [Unknown]
  - Lung disorder [Recovering/Resolving]
  - Sinusitis [Unknown]
  - Anaemia [Unknown]

NARRATIVE: CASE EVENT DATE: 20180509
